FAERS Safety Report 4666655-1 (Version None)
Quarter: 2005Q2

REPORT INFORMATION
  Report Type: 
  Country: None (occurrence: None)
  Receive Date: 20050518
  Receipt Date: 20050506
  Transmission Date: 20051028
  Serious: Yes (Hospitalization, Other)
  Sender: FDA-Public Use
  Company Number: KII-2005-0016523

PATIENT
  Age: 42 Year
  Sex: Male

DRUGS (4)
  1. OXYCONTIN [Suspect]
     Dosage: UNK, ORAL
     Route: 048
  2. ALPRAZOLAM [Suspect]
     Dosage: UNK, ORAL
     Route: 048
  3. CARISOPRODOL [Suspect]
     Dosage: UNK, ORAL
     Route: 048
  4. ACETAMINOPHEN [Suspect]
     Dosage: UNK
     Route: 065

REACTIONS (9)
  - AGITATION [None]
  - COMA [None]
  - INTENTIONAL MISUSE [None]
  - MULTIPLE DRUG OVERDOSE [None]
  - RESTLESSNESS [None]
  - SOMNOLENCE [None]
  - SUICIDE ATTEMPT [None]
  - TACHYCARDIA [None]
  - URINARY INCONTINENCE [None]
